FAERS Safety Report 21280885 (Version 1)
Quarter: 2022Q3

REPORT INFORMATION
  Report Type: Spontaneous
  Country: US (occurrence: None)
  Receive Date: 20220831
  Receipt Date: 20220831
  Transmission Date: 20221026
  Serious: No
  Sender: FDA-Public Use
  Company Number: None

PATIENT
  Age: 65 Year
  Sex: Male

DRUGS (11)
  1. CAPECITABINE [Suspect]
     Active Substance: CAPECITABINE
     Indication: Neuroendocrine carcinoma
     Dosage: FREQUENCY : TWICE A DAY;?
     Route: 048
  2. TEMOZOLOMIDE [Suspect]
     Active Substance: TEMOZOLOMIDE
     Indication: Neuroendocrine carcinoma
     Dosage: FREQUENCY : ONCE;?
     Route: 004
  3. ACETAMINOPHEN [Concomitant]
  4. BENADRYL [Concomitant]
  5. CLARITIN [Concomitant]
  6. LIDOCAINE [Concomitant]
     Active Substance: LIDOCAINE
  7. LORAZEPAM [Concomitant]
  8. OLMESARTAN [Concomitant]
  9. ONDANSETRON [Concomitant]
  10. PREDNISONE [Concomitant]
  11. TEMOZOLOMID [Concomitant]

REACTIONS (1)
  - Adverse drug reaction [None]
